FAERS Safety Report 7771984-9 (Version None)
Quarter: 2011Q3

REPORT INFORMATION
  Report Type: 
  Country: None (occurrence: None)
  Receive Date: 20110922
  Receipt Date: 20110624
  Transmission Date: 20111222
  Serious: No
  Sender: FDA-Public Use
  Company Number: US-ASTRAZENECA-2011SE25882

PATIENT
  Age: 57 Year
  Sex: Female
  Weight: 68.9 kg

DRUGS (13)
  1. 2 MUSCLE RELAXANTS [Concomitant]
  2. KLONOPIN [Concomitant]
     Indication: RESTLESS LEGS SYNDROME
  3. IMODIUM [Concomitant]
  4. COUMADIN [Concomitant]
     Indication: CARDIAC DISORDER
  5. LANTUS [Concomitant]
  6. HYDROCORTISONE [Concomitant]
     Indication: ADRENAL DISORDER
  7. SEROQUEL XR [Suspect]
     Indication: BIPOLAR DISORDER
     Route: 048
     Dates: start: 20100501
  8. IMITREX [Concomitant]
  9. PHENAZOPYRIDINE HCL TAB [Concomitant]
     Indication: BLADDER DISORDER
  10. HYDROCODONE [Concomitant]
     Indication: PAIN
     Dosage: 10/325 DAILY
  11. SYNTHROID [Concomitant]
     Indication: THYROID DISORDER
  12. TRAZODONE HCL [Concomitant]
  13. CYCLOBENZAPR [Concomitant]

REACTIONS (7)
  - PSYCHOTIC DISORDER [None]
  - DISORIENTATION [None]
  - DRUG DOSE OMISSION [None]
  - SELF INJURIOUS BEHAVIOUR [None]
  - HALLUCINATION [None]
  - SCREAMING [None]
  - LIGAMENT RUPTURE [None]
